FAERS Safety Report 4982720-3 (Version None)
Quarter: 2006Q2

REPORT INFORMATION
  Report Type: 
  Country: None (occurrence: None)
  Receive Date: 20060425
  Receipt Date: 20051006
  Transmission Date: 20061013
  Serious: Yes (Hospitalization)
  Sender: FDA-Public Use
  Company Number: US-MERCK-0510USA05793

PATIENT
  Age: 79 Year
  Sex: Female
  Weight: 64 kg

DRUGS (3)
  1. VIOXX [Suspect]
     Indication: OSTEOARTHRITIS
     Route: 048
     Dates: start: 20040130, end: 20040913
  2. VIOXX [Suspect]
     Indication: ARTHRITIS
     Route: 048
     Dates: start: 20040130, end: 20040913
  3. ASPIRIN [Concomitant]
     Route: 065

REACTIONS (20)
  - ABDOMINAL DISCOMFORT [None]
  - ACUTE CORONARY SYNDROME [None]
  - ATRIOVENTRICULAR BLOCK FIRST DEGREE [None]
  - BACK PAIN [None]
  - BUNDLE BRANCH BLOCK LEFT [None]
  - CARDIOMEGALY [None]
  - CORONARY ARTERY DISEASE [None]
  - DIARRHOEA [None]
  - DIVERTICULUM [None]
  - DYSLIPIDAEMIA [None]
  - GASTROOESOPHAGEAL REFLUX DISEASE [None]
  - HYPERTENSION [None]
  - HYPOGLYCAEMIA [None]
  - MYOCARDIAL INFARCTION [None]
  - RENAL FAILURE CHRONIC [None]
  - SINUS BRADYCARDIA [None]
  - THERAPEUTIC AGENT TOXICITY [None]
  - URINARY TRACT INFECTION BACTERIAL [None]
  - VENTRICULAR EXTRASYSTOLES [None]
  - VOMITING [None]
